FAERS Safety Report 19105474 (Version 5)
Quarter: 2021Q4

REPORT INFORMATION
  Report Type: Report from Study
  Country: US (occurrence: US)
  Receive Date: 20210407
  Receipt Date: 20211217
  Transmission Date: 20220303
  Serious: Yes (Hospitalization, Other)
  Sender: FDA-Public Use
  Company Number: US-TAKEDA-US202019917

PATIENT
  Sex: Male

DRUGS (1)
  1. HUMAN IMMUNOGLOBULIN G [Suspect]
     Active Substance: HUMAN IMMUNOGLOBULIN G
     Indication: Immunodeficiency common variable
     Dosage: UNK
     Route: 065

REACTIONS (14)
  - Infection [Unknown]
  - Respiratory failure [Unknown]
  - Pneumonia [Not Recovered/Not Resolved]
  - Influenza [Unknown]
  - Cardiac failure congestive [Unknown]
  - Tracheal disorder [Unknown]
  - Bronchial disorder [Unknown]
  - Vocal cord dysfunction [Unknown]
  - Asthma [Unknown]
  - Hospitalisation [Unknown]
  - Neoplasm malignant [Unknown]
  - Pulmonary thrombosis [Unknown]
  - Neck mass [Unknown]
  - Therapy interrupted [Unknown]
